FAERS Safety Report 8117373-9 (Version None)
Quarter: 2012Q1

REPORT INFORMATION
  Report Type: 
  Country: None (occurrence: None)
  Receive Date: 20120206
  Receipt Date: 20120127
  Transmission Date: 20120608
  Serious: Yes (Other)
  Sender: FDA-Public Use
  Company Number: JP-ASTRAZENECA-2012SE06378

PATIENT
  Age: 33065 Day
  Sex: Female
  Weight: 44.9 kg

DRUGS (9)
  1. SEROQUEL [Suspect]
     Indication: RESTLESSNESS
     Route: 048
     Dates: start: 20111226, end: 20120122
  2. TRICHLORMETHIAZIDE [Concomitant]
     Indication: CARDIAC FAILURE
  3. BIO-THREE [Concomitant]
     Indication: DIARRHOEA
  4. LANSOPRAZOLE [Concomitant]
     Indication: GASTRITIS
     Route: 048
  5. WARFARIN SODIUM [Concomitant]
     Indication: ATRIAL FIBRILLATION
     Route: 048
     Dates: start: 20090301
  6. CEREKINON [Concomitant]
     Indication: DIARRHOEA
     Dates: start: 20111101
  7. EPIRENAT [Concomitant]
     Indication: EPILEPSY
     Dates: start: 20111214
  8. POSTERISAN [Concomitant]
     Indication: HAEMORRHOIDS
  9. DEPAKENE [Concomitant]

REACTIONS (2)
  - HYPERGLYCAEMIA [None]
  - OFF LABEL USE [None]
